FAERS Safety Report 10231793 (Version 1)
Quarter: 2014Q2

REPORT INFORMATION
  Report Type: Spontaneous
  Country: IT (occurrence: IT)
  Receive Date: 20140612
  Receipt Date: 20140612
  Transmission Date: 20141212
  Serious: Yes (Other)
  Sender: FDA-Public Use
  Company Number: PHHY2014IT069385

PATIENT
  Age: 72 Year
  Sex: Female

DRUGS (2)
  1. RIBAVIRIN [Suspect]
     Dosage: 800 UG, QD
     Route: 048
     Dates: start: 20121123, end: 20130225
  2. PEGYLATED INTERFERON ALFA-2A [Suspect]
     Indication: HEPATITIS C
     Dosage: 180 MG, QD
     Route: 030
     Dates: start: 20121123, end: 20130225

REACTIONS (1)
  - Femoral neck fracture [Unknown]
